FAERS Safety Report 7044426-9 (Version None)
Quarter: 2010Q4

REPORT INFORMATION
  Report Type: 
  Country: None (occurrence: None)
  Receive Date: 20101014
  Receipt Date: 20091217
  Transmission Date: 20110411
  Serious: No
  Sender: FDA-Public Use
  Company Number: US-BAYER-200943913NA

PATIENT
  Age: 35 Year
  Sex: Female

DRUGS (1)
  1. MIRENA [Suspect]
     Indication: INTRA-UTERINE CONTRACEPTIVE DEVICE
     Dosage: FREQUENCY: CONTINUOUS
     Route: 015
     Dates: start: 20090301

REACTIONS (2)
  - MENORRHAGIA [None]
  - VAGINAL HAEMORRHAGE [None]
